FAERS Safety Report 4633802-7 (Version None)
Quarter: 2005Q2

REPORT INFORMATION
  Report Type: 
  Country: None (occurrence: None)
  Receive Date: 20050412
  Receipt Date: 20050412
  Transmission Date: 20051028
  Serious: Yes (Hospitalization)
  Sender: FDA-Public Use
  Company Number: None

PATIENT
  Sex: Female
  Weight: 56.246 kg

DRUGS (4)
  1. BORTEZOMIB  MILLENIUM [Suspect]
     Indication: CERVIX CANCER METASTATIC
     Dosage: 1.35 MG/M2  D1, 4,8, 11 Q12D INTRAVENOUS
     Route: 042
     Dates: start: 20050314, end: 20050325
  2. IRINOTECAN        PFIZER [Suspect]
     Dosage: 75 MG/M2 D1,8 Q21D INTRAVENOUS
     Route: 042
     Dates: start: 20050314, end: 20050322
  3. OXYCONTIN [Concomitant]
  4. OXYCODONE [Concomitant]

REACTIONS (6)
  - CONFUSIONAL STATE [None]
  - DISEASE PROGRESSION [None]
  - FATIGUE [None]
  - HYPOKALAEMIA [None]
  - HYPONATRAEMIA [None]
  - THROMBOCYTOPENIA [None]
